FAERS Safety Report 8582729-7 (Version None)
Quarter: 2012Q3

REPORT INFORMATION
  Report Type: 
  Country: None (occurrence: None)
  Receive Date: 20120809
  Receipt Date: 20120731
  Transmission Date: 20120928
  Serious: Yes (Death, Hospitalization, Other)
  Sender: FDA-Public Use
  Company Number: US-BRISTOL-MYERS SQUIBB COMPANY-16828170

PATIENT
  Age: 81 Year
  Sex: Male
  Weight: 64 kg

DRUGS (5)
  1. LASIX [Concomitant]
  2. PRILOSEC [Concomitant]
  3. ATIVAN [Concomitant]
  4. METOPROLOL TARTRATE [Concomitant]
  5. COUMADIN [Suspect]

REACTIONS (3)
  - PLEURAL EFFUSION [None]
  - CIRCULATORY COLLAPSE [None]
  - LEUKAEMOID REACTION [None]
